FAERS Safety Report 7225769-2 (Version None)
Quarter: 2011Q1

REPORT INFORMATION
  Report Type: 
  Country: None (occurrence: None)
  Receive Date: 20110110
  Receipt Date: 20110110
  Transmission Date: 20110831
  Serious: Yes (Life-Threatening, Hospitalization)
  Sender: FDA-Public Use
  Company Number: None

PATIENT
  Age: 52 Year
  Sex: Female
  Weight: 72.1219 kg

DRUGS (1)
  1. SULINDAC [Suspect]
     Indication: NERVE COMPRESSION
     Dosage: 1 TWICE DAILY
     Dates: start: 20101013, end: 20101028

REACTIONS (6)
  - KIDNEY ENLARGEMENT [None]
  - PANCREATIC DISORDER [None]
  - ABDOMINAL PAIN UPPER [None]
  - GASTRIC DISORDER [None]
  - HEPATOMEGALY [None]
  - GALLBLADDER ENLARGEMENT [None]
